FAERS Safety Report 6516715-5 (Version None)
Quarter: 2009Q4

REPORT INFORMATION
  Report Type: 
  Country: None (occurrence: None)
  Receive Date: 20091223
  Receipt Date: 20090617
  Transmission Date: 20100525
  Serious: No
  Sender: FDA-Public Use
  Company Number: A0793131A

PATIENT

DRUGS (1)
  1. RYTHMOL [Suspect]
     Route: 065

REACTIONS (1)
  - DYSPNOEA [None]
